FAERS Safety Report 12125337 (Version 1)
Quarter: 2016Q1

REPORT INFORMATION
  Report Type: Spontaneous
  Country: US (occurrence: None)
  Receive Date: 20160226
  Receipt Date: 20160226
  Transmission Date: 20160526
  Serious: Yes (Hospitalization)
  Sender: FDA-Public Use
  Company Number: None

PATIENT
  Sex: Male
  Weight: 58.2 kg

DRUGS (17)
  1. ONDANSETRON [Concomitant]
     Active Substance: ONDANSETRON
  2. MAGESTROL [Concomitant]
  3. OMEPRAZOLE. [Concomitant]
     Active Substance: OMEPRAZOLE
  4. IPRATROPIUM BROMIDE. [Concomitant]
     Active Substance: IPRATROPIUM BROMIDE
  5. OXYGEN. [Concomitant]
     Active Substance: OXYGEN
  6. ASPIRIN. [Concomitant]
     Active Substance: ASPIRIN
  7. TIOTROPIUM [Concomitant]
     Active Substance: TIOTROPIUM
  8. SEVELAMER CARBONATE. [Concomitant]
     Active Substance: SEVELAMER CARBONATE
  9. BENZONATATE. [Concomitant]
     Active Substance: BENZONATATE
  10. TEMAZEPAM. [Concomitant]
     Active Substance: TEMAZEPAM
  11. CINACALET [Concomitant]
  12. FLUTICASONE PROPIONATE. [Concomitant]
     Active Substance: FLUTICASONE PROPIONATE
  13. OXYCODONE [Concomitant]
     Active Substance: OXYCODONE
  14. B COMPLEX WITH FOLIC ACID [Concomitant]
  15. HYDROCORTISONE. [Concomitant]
     Active Substance: HYDROCORTISONE
  16. VIEKIRA PAK [Suspect]
     Active Substance: DASABUVIR\OMBITASVIR\PARITAPREVIR\RITONAVIR
  17. DICLOFENAC SODIUM. [Concomitant]
     Active Substance: DICLOFENAC SODIUM

REACTIONS (4)
  - Fluid overload [None]
  - Chest pain [None]
  - Dyspnoea [None]
  - Pleural effusion [None]

NARRATIVE: CASE EVENT DATE: 20150927
